FAERS Safety Report 11931189 (Version 2)
Quarter: 2016Q1

REPORT INFORMATION
  Report Type: Spontaneous
  Country: US (occurrence: US)
  Receive Date: 20160120
  Receipt Date: 20160328
  Transmission Date: 20160526
  Serious: No
  Sender: FDA-Public Use
  Company Number: US-009507513-1601USA003577

PATIENT
  Sex: Female

DRUGS (1)
  1. NEXPLANON [Suspect]
     Active Substance: ETONOGESTREL
     Indication: CONTRACEPTION
     Dosage: ONE ROD EVERY THREE YEARS
     Route: 059

REACTIONS (4)
  - Device difficult to use [Unknown]
  - Complication associated with device [Unknown]
  - Pain [Unknown]
  - Overdose [Unknown]
